FAERS Safety Report 9349617 (Version 4)
Quarter: 2014Q2

REPORT INFORMATION
  Report Type: Spontaneous
  Country: US (occurrence: US)
  Receive Date: 20130614
  Receipt Date: 20140527
  Transmission Date: 20141212
  Serious: Yes (Hospitalization)
  Sender: FDA-Public Use
  Company Number: US-B.I. PHARMACEUTICALS,INC./RIDGEFIELD-2013-BI-16572BP

PATIENT
  Age: 70 Year
  Sex: Female
  Weight: 47.6 kg

DRUGS (15)
  1. PRADAXA [Suspect]
     Indication: CEREBROVASCULAR ACCIDENT PROPHYLAXIS
     Route: 065
     Dates: start: 20110215, end: 20110808
  2. PRADAXA [Suspect]
     Indication: THROMBOSIS PROPHYLAXIS
     Route: 065
     Dates: start: 20111116, end: 20121018
  3. PRADAXA [Suspect]
     Indication: ATRIAL FIBRILLATION
  4. SIMVASTATIN [Concomitant]
     Route: 065
  5. ISOSORBIDE MONONITRATE [Concomitant]
     Route: 065
  6. TRAZODONE [Concomitant]
     Route: 065
  7. PANTOPRAZOLE [Concomitant]
     Route: 065
  8. SULFAMETH TRIMETHOPRIM [Concomitant]
     Route: 065
  9. PHENAZOPYRIDINE [Concomitant]
     Route: 065
  10. METOLAZONE [Concomitant]
     Route: 065
  11. LEVOTHYROXINE [Concomitant]
     Route: 065
  12. FUROSEMIDE [Concomitant]
     Route: 065
  13. SPIRONOLACTONE [Concomitant]
     Route: 065
  14. ATENOLOL [Concomitant]
     Route: 065
  15. RANEXA [Concomitant]
     Route: 065

REACTIONS (6)
  - Gastrointestinal haemorrhage [Recovered/Resolved]
  - Haemoptysis [Recovered/Resolved]
  - Renal failure acute [Unknown]
  - Confusional state [Unknown]
  - Anxiety [Unknown]
  - Nervousness [Unknown]
